FAERS Safety Report 7000039-6 (Version None)
Quarter: 2010Q3

REPORT INFORMATION
  Report Type: 
  Country: None (occurrence: None)
  Receive Date: 20100920
  Receipt Date: 20070501
  Transmission Date: 20110219
  Serious: Yes (Other)
  Sender: FDA-Public Use
  Company Number: US-ASTRAZENECA-2006UW22090

PATIENT
  Age: 58 Year
  Sex: Female
  Weight: 109.8 kg

DRUGS (27)
  1. SEROQUEL [Suspect]
     Indication: NERVOUSNESS
     Route: 048
     Dates: start: 20051101, end: 20060301
  2. SEROQUEL [Suspect]
     Indication: DEPRESSION
     Route: 048
     Dates: start: 20051101, end: 20060301
  3. SEROQUEL [Suspect]
     Indication: ANXIETY
     Route: 048
     Dates: start: 20051101, end: 20060301
  4. SEROQUEL [Suspect]
     Route: 048
     Dates: start: 20060223
  5. SEROQUEL [Suspect]
     Route: 048
     Dates: start: 20060223
  6. SEROQUEL [Suspect]
     Route: 048
     Dates: start: 20060223
  7. ELMIRON [Concomitant]
     Route: 048
  8. TRAMADOL HYDROCHLORIDE AND ACETAMINOPHEN [Concomitant]
  9. ATENOLOL [Concomitant]
     Dosage: EVERY DAY
     Route: 048
  10. SYNTHROID [Concomitant]
     Dosage: STRENGTH 100 MCG, 112 MCG, DOSE 0.1 MG AS REQUIRED.
     Route: 048
  11. CIPROFLOXACIN [Concomitant]
  12. FLUOXETINE [Concomitant]
  13. AMITRIPTYLINE HCL [Concomitant]
  14. URISPAS [Concomitant]
     Dosage: DOSE 200 MG TO 300 MG.
     Route: 048
  15. CLONAZEPAM [Concomitant]
     Route: 048
  16. SKELAXIN [Concomitant]
  17. TRIAMTERENE AND HYDROCHLOROTHIAZIDE [Concomitant]
     Indication: HYPERTENSION
     Dosage: STRENGTH 37.5/25 MG,  DOSE 37.5/ 25 MG.
  18. LORCET-HD [Concomitant]
     Indication: BACK PAIN
     Dosage: ONE TABLET AS REQUIRED
  19. WELLBUTRIN SR [Concomitant]
     Indication: ANXIETY
  20. WELLBUTRIN SR [Concomitant]
     Indication: DEPRESSION
  21. NAPRELAN [Concomitant]
     Route: 048
  22. FLEXERIL [Concomitant]
     Route: 048
  23. BUSPAR [Concomitant]
     Route: 048
     Dates: start: 20001001
  24. ELAVIL [Concomitant]
     Route: 048
  25. LASIX [Concomitant]
     Route: 048
  26. ZOLOFT [Concomitant]
     Dosage: DOSE 50 MG TO 150 MG DAILY
     Route: 048
     Dates: start: 19980101
  27. PREVACID [Concomitant]

REACTIONS (8)
  - ACCIDENT [None]
  - BLOOD CHOLESTEROL INCREASED [None]
  - DIABETES MELLITUS [None]
  - DIABETIC KETOACIDOSIS [None]
  - GLYCOSURIA [None]
  - TYPE 2 DIABETES MELLITUS [None]
  - VISION BLURRED [None]
  - VISUAL ACUITY REDUCED [None]
